FAERS Safety Report 13721933 (Version 7)
Quarter: 2020Q1

REPORT INFORMATION
  Report Type: Spontaneous
  Country: US (occurrence: US)
  Receive Date: 20170706
  Receipt Date: 20200331
  Transmission Date: 20200409
  Serious: No
  Sender: FDA-Public Use
  Company Number: US-PFIZER INC-2017280879

PATIENT
  Age: 57 Year
  Sex: Female

DRUGS (2)
  1. GENOTROPIN [Suspect]
     Active Substance: SOMATROPIN
     Dosage: 0.3 MG, DAILY
     Dates: start: 20170127
  2. GENOTROPIN [Suspect]
     Active Substance: SOMATROPIN
     Dosage: UNK

REACTIONS (9)
  - Incorrect dose administered [Unknown]
  - Injection site haemorrhage [Unknown]
  - Device issue [Unknown]
  - Insulin-like growth factor increased [Unknown]
  - Fatigue [Unknown]
  - Needle issue [Unknown]
  - Malaise [Unknown]
  - Injection site bruising [Unknown]
  - Asthenia [Unknown]
